FAERS Safety Report 10532707 (Version 1)
Quarter: 2014Q4

REPORT INFORMATION
  Report Type: Spontaneous
  Country: US (occurrence: US)
  Receive Date: 20141021
  Receipt Date: 20141021
  Transmission Date: 20150529
  Serious: Yes (Hospitalization)
  Sender: FDA-Public Use
  Company Number: US-B.I. PHARMACEUTICALS,INC./RIDGEFIELD-2014-BI-50606BP

PATIENT
  Age: 67 Year
  Sex: Male

DRUGS (6)
  1. PRADAXA [Suspect]
     Active Substance: DABIGATRAN ETEXILATE MESYLATE
     Indication: ANTICOAGULANT THERAPY
     Route: 065
     Dates: start: 201202, end: 20120410
  2. LISINOPRIL. [Concomitant]
     Active Substance: LISINOPRIL
     Dosage: 20 MG
     Route: 065
  3. PRADAXA [Suspect]
     Active Substance: DABIGATRAN ETEXILATE MESYLATE
     Indication: TRANSIENT ISCHAEMIC ATTACK
  4. HYDROCHLOROTHIAZIDE. [Concomitant]
     Active Substance: HYDROCHLOROTHIAZIDE
     Dosage: 25 MG
     Route: 065
  5. ROSUVASTATIN [Concomitant]
     Active Substance: ROSUVASTATIN
     Dosage: 20 MG
     Route: 065
  6. ATENOLOL. [Concomitant]
     Active Substance: ATENOLOL
     Dosage: 15 MG
     Route: 065

REACTIONS (10)
  - Mental status changes [Unknown]
  - Nephrolithiasis [Unknown]
  - Gastrointestinal haemorrhage [Unknown]
  - Retroperitoneal fibrosis [Unknown]
  - Constipation [Recovered/Resolved]
  - Aortic aneurysm [Unknown]
  - Diarrhoea [Unknown]
  - Urinary retention [Unknown]
  - Abdominal pain lower [Recovered/Resolved]
  - Streptococcal bacteraemia [Unknown]

NARRATIVE: CASE EVENT DATE: 201202
